FAERS Safety Report 12154256 (Version 2)
Quarter: 2016Q1

REPORT INFORMATION
  Report Type: Spontaneous
  Country: US (occurrence: US)
  Receive Date: 20160307
  Receipt Date: 20160315
  Transmission Date: 20160526
  Serious: Yes (Other)
  Sender: FDA-Public Use
  Company Number: US-TEVA-640182USA

PATIENT
  Age: 42 Year
  Sex: Female

DRUGS (1)
  1. ZECUITY [Suspect]
     Active Substance: SUMATRIPTAN SUCCINATE
     Indication: MIGRAINE
     Dosage: 6.5 MG / 4 HOURS
     Route: 062
     Dates: start: 20160226, end: 20160226

REACTIONS (6)
  - Application site pain [Unknown]
  - Application site burn [Unknown]
  - Application site erythema [Not Recovered/Not Resolved]
  - Application site swelling [Recovering/Resolving]
  - Application site bruise [Unknown]
  - Application site pain [Not Recovered/Not Resolved]

NARRATIVE: CASE EVENT DATE: 20160226
